FAERS Safety Report 9278826 (Version 1)
Quarter: 2013Q2

REPORT INFORMATION
  Report Type: Spontaneous
  Country: DE (occurrence: DE)
  Receive Date: 20130508
  Receipt Date: 20130508
  Transmission Date: 20140414
  Serious: Yes (Other)
  Sender: FDA-Public Use
  Company Number: GXKR2013DE001710

PATIENT
  Sex: 0

DRUGS (2)
  1. AMITRIPTYLINE [Suspect]
     Dosage: MATERNAL DOSE: 50 [MG/D ]
     Route: 063
  2. AMITRIPTYLINE [Suspect]
     Dosage: MATERNAL DOSE: 50 MG, UNK, THROUGHOUT PREGNANCY
     Route: 064

REACTIONS (6)
  - Apnoea neonatal [Recovered/Resolved]
  - Bradycardia neonatal [Recovered/Resolved]
  - Neonatal disorder [Recovered/Resolved]
  - Breathing-related sleep disorder [Recovered/Resolved]
  - Cyanosis [Recovered/Resolved]
  - Oxygen saturation decreased [Recovered/Resolved]
